FAERS Safety Report 12058360 (Version 1)
Quarter: 2016Q1

REPORT INFORMATION
  Report Type: Spontaneous
  Country: US (occurrence: US)
  Receive Date: 20160210
  Receipt Date: 20160210
  Transmission Date: 20160526
  Serious: No
  Sender: FDA-Public Use
  Company Number: US-BRISTOL-MYERS SQUIBB COMPANY-BMS-2016-009693

PATIENT
  Age: 22 Year
  Sex: Male

DRUGS (6)
  1. ABILIFY [Suspect]
     Active Substance: ARIPIPRAZOLE
     Indication: ANXIETY
     Dosage: UNK
     Route: 065
     Dates: start: 2014
  2. LATUDA [Concomitant]
     Active Substance: LURASIDONE HYDROCHLORIDE
     Indication: ANXIETY
     Route: 065
  3. EFFEXOR [Concomitant]
     Active Substance: VENLAFAXINE HYDROCHLORIDE
     Indication: PRODUCT USED FOR UNKNOWN INDICATION
     Dosage: UNK, PRN
     Route: 065
  4. XANAX [Concomitant]
     Active Substance: ALPRAZOLAM
     Indication: PRODUCT USED FOR UNKNOWN INDICATION
     Route: 065
  5. GEODON [Concomitant]
     Active Substance: ZIPRASIDONE HYDROCHLORIDE\ZIPRASIDONE MESYLATE
     Indication: ANXIETY
     Route: 065
  6. BREXPIPRAZOLE [Concomitant]
     Active Substance: BREXPIPRAZOLE
     Indication: ANXIETY
     Dosage: 1 MG, QD; DOSE WAS INCREASED TO 3MG
     Route: 048

REACTIONS (4)
  - Weight increased [Not Recovered/Not Resolved]
  - Headache [Recovered/Resolved]
  - Off label use [Unknown]
  - Hunger [Recovering/Resolving]
